FAERS Safety Report 8340024-5 (Version None)
Quarter: 2012Q2

REPORT INFORMATION
  Report Type: 
  Country: None (occurrence: None)
  Receive Date: 20120507
  Receipt Date: 20120430
  Transmission Date: 20120825
  Serious: Yes (Other)
  Sender: FDA-Public Use
  Company Number: BR-PFIZER INC-2012097195

PATIENT
  Age: 79 Year
  Sex: Female
  Weight: 70 kg

DRUGS (4)
  1. ALDACTONE [Concomitant]
     Dosage: UNK
  2. LOSARTAN POTASSIUM [Concomitant]
     Dosage: UNK
  3. VENALOT [Concomitant]
     Dosage: UNK
  4. LYRICA [Suspect]
     Indication: PAIN IN EXTREMITY
     Dosage: 75 MG, 1X/DAY
     Route: 048
     Dates: start: 20120416, end: 20120417

REACTIONS (5)
  - TREMOR [None]
  - ARTHROPATHY [None]
  - INSOMNIA [None]
  - DIZZINESS [None]
  - BLOOD POTASSIUM INCREASED [None]
